FAERS Safety Report 6515519-7 (Version None)
Quarter: 2009Q4

REPORT INFORMATION
  Report Type: 
  Country: None (occurrence: None)
  Receive Date: 20091223
  Receipt Date: 20091217
  Transmission Date: 20100525
  Serious: Yes (Hospitalization)
  Sender: FDA-Public Use
  Company Number: FR-BRISTOL-MYERS SQUIBB COMPANY-14900278

PATIENT
  Age: 59 Year
  Sex: Male
  Weight: 59 kg

DRUGS (8)
  1. REYATAZ [Suspect]
     Indication: HIV INFECTION
     Dates: start: 20090530
  2. TRUVADA [Suspect]
     Indication: HIV INFECTION
     Dates: start: 20090530
  3. NORVIR [Suspect]
     Indication: HIV INFECTION
     Dates: start: 20090530
  4. BACTRIM [Concomitant]
     Indication: INFECTION PROPHYLAXIS
     Dosage: 2DF=2 TABS
  5. AZADOSE [Concomitant]
     Indication: INFECTION PROPHYLAXIS
     Dosage: 2 DF-2 TABS
  6. RAMIPRIL [Concomitant]
     Indication: HYPERTENSION
  7. TEMERIT [Concomitant]
     Indication: HYPERTENSION
  8. DIFFU-K [Concomitant]
     Indication: HYPERTENSION

REACTIONS (2)
  - DYSPNOEA [None]
  - POLYNEUROPATHY [None]
